FAERS Safety Report 9775849 (Version 1)
Quarter: 2013Q4

REPORT INFORMATION
  Report Type: Spontaneous
  Country: US (occurrence: US)
  Receive Date: 20131220
  Receipt Date: 20131220
  Transmission Date: 20140711
  Serious: Yes (Hospitalization)
  Sender: FDA-Public Use
  Company Number: US-GLAXOSMITHKLINE-A1054288A

PATIENT
  Age: 61 Year
  Sex: Female

DRUGS (10)
  1. ADVAIR [Suspect]
     Indication: CHRONIC OBSTRUCTIVE PULMONARY DISEASE
     Dosage: 1PUFF TWICE PER DAY
     Route: 055
     Dates: start: 2007
  2. WELLBUTRIN SR [Suspect]
     Indication: DEPRESSION
     Dosage: 150MG TWICE PER DAY
     Route: 048
     Dates: start: 2007
  3. PANTOPRAZOLE [Concomitant]
  4. ASPIRIN [Concomitant]
  5. CLOPIDOGREL BISULFATE [Concomitant]
  6. DILTIAZEM [Concomitant]
  7. FAMOTIDINE [Concomitant]
  8. METFORMIN [Concomitant]
  9. PAROXETINE [Concomitant]
  10. PRAVASTATIN SODIUM [Concomitant]

REACTIONS (6)
  - Rectal haemorrhage [Recovering/Resolving]
  - Anaemia [Recovering/Resolving]
  - Blood test abnormal [Recovering/Resolving]
  - Fatigue [Recovering/Resolving]
  - Gastritis erosive [Unknown]
  - Haemorrhoids [Unknown]
